FAERS Safety Report 15104284 (Version 1)
Quarter: 2018Q3

REPORT INFORMATION
  Report Type: Report from Study
  Country: IT (occurrence: IT)
  Receive Date: 20180703
  Receipt Date: 20180703
  Transmission Date: 20181010
  Serious: Yes (Hospitalization)
  Sender: FDA-Public Use
  Company Number: IT-PFIZER INC-2018267389

PATIENT
  Age: 43 Year
  Sex: Female

DRUGS (3)
  1. RANITIDINE. [Suspect]
     Active Substance: RANITIDINE
     Dosage: 6000 MG, UNK (6000 MG, TOTAL)
     Route: 048
     Dates: start: 20180510, end: 20180510
  2. RAMIPRIL. [Suspect]
     Active Substance: RAMIPRIL
     Dosage: 35 MG, UNK (35 MG, TOTAL)
     Route: 048
     Dates: start: 20180510, end: 20180510
  3. VALSARTAN + HIDROCLOROTIAZIDA [Suspect]
     Active Substance: HYDROCHLOROTHIAZIDE\VALSARTAN
     Dosage: 56 DF, UNK (56 DF, TOTAL)
     Route: 048
     Dates: start: 20180510, end: 20180510

REACTIONS (2)
  - Intentional self-injury [Recovering/Resolving]
  - Drug abuse [Unknown]

NARRATIVE: CASE EVENT DATE: 20180510
